FAERS Safety Report 6752654-2 (Version None)
Quarter: 2010Q2

REPORT INFORMATION
  Report Type: 
  Country: None (occurrence: None)
  Receive Date: 20100602
  Receipt Date: 20100519
  Transmission Date: 20101027
  Serious: Yes (Hospitalization)
  Sender: FDA-Public Use
  Company Number: BR-MEDIMMUNE-MEDI-0011141

PATIENT
  Sex: Female
  Weight: 8 kg

DRUGS (5)
  1. SYNAGIS [Suspect]
     Indication: CARDIAC DISORDER
     Route: 030
     Dates: start: 20090408
  2. FERROUS SULFATE TAB [Concomitant]
     Route: 048
     Dates: start: 20090301
  3. PROTOVIT [Concomitant]
     Route: 048
     Dates: start: 20090201
  4. PROPRANOLOL [Concomitant]
     Route: 048
     Dates: start: 20090126
  5. PREDNISOLONE [Concomitant]
     Indication: COUGH
     Route: 048
     Dates: start: 20100319

REACTIONS (5)
  - BRONCHIOLITIS [None]
  - NAUSEA [None]
  - PYREXIA [None]
  - SKIN EXFOLIATION [None]
  - WEIGHT DECREASED [None]
